FAERS Safety Report 6179044-8 (Version None)
Quarter: 2009Q2

REPORT INFORMATION
  Report Type: 
  Country: None (occurrence: None)
  Receive Date: 20090505
  Receipt Date: 20090201
  Transmission Date: 20091009
  Serious: No
  Sender: FDA-Public Use
  Company Number: US-BAYER-200913004NA

PATIENT
  Sex: Female
  Weight: 95 kg

DRUGS (2)
  1. MAGNEVIST [Suspect]
     Indication: NUCLEAR MAGNETIC RESONANCE IMAGING
     Dosage: TOTAL DAILY DOSE: 25 ML
     Route: 042
     Dates: start: 20090131, end: 20090131
  2. MAGNEVIST [Suspect]
     Dosage: (2) SINGLE USE VIALS

REACTIONS (1)
  - URTICARIA [None]
